FAERS Safety Report 5206577-0 (Version None)
Quarter: 2007Q1

REPORT INFORMATION
  Report Type: 
  Country: None (occurrence: None)
  Receive Date: 20070111
  Receipt Date: 20070108
  Transmission Date: 20070707
  Serious: Yes (Hospitalization)
  Sender: FDA-Public Use
  Company Number: FR-MERCK-0701FRA00012

PATIENT
  Age: 72 Year
  Sex: Female

DRUGS (6)
  1. HYZAAR [Suspect]
     Indication: HYPERTENSION
     Route: 048
     Dates: end: 20061118
  2. ALTHIAZIDE AND SPIRONOLACTONE [Suspect]
     Indication: HYPERTENSION
     Route: 048
     Dates: end: 20061118
  3. CARBAMAZEPINE [Suspect]
     Indication: EPILEPSY
     Route: 048
     Dates: end: 20061118
  4. RISPERIDONE [Suspect]
     Indication: PSYCHOTIC DISORDER
     Route: 048
     Dates: end: 20061118
  5. ESCITALOPRAM OXALATE [Suspect]
     Indication: DYSTHYMIC DISORDER
     Route: 048
     Dates: end: 20061118
  6. CELIPROLOL HYDROCHLORIDE [Concomitant]
     Indication: HYPERTENSION
     Route: 048

REACTIONS (2)
  - FALL [None]
  - HYPONATRAEMIA [None]
